FAERS Safety Report 6179212-5 (Version None)
Quarter: 2009Q2

REPORT INFORMATION
  Report Type: 
  Country: None (occurrence: None)
  Receive Date: 20090505
  Receipt Date: 20090422
  Transmission Date: 20091009
  Serious: Yes (Other)
  Sender: FDA-Public Use
  Company Number: NL-CELGENEUS-114-50794-09030870

PATIENT
  Sex: Female

DRUGS (1)
  1. VIDAZA [Suspect]
     Indication: DRUG USE FOR UNKNOWN INDICATION
     Route: 065
     Dates: start: 20090201

REACTIONS (6)
  - ACUTE MYELOID LEUKAEMIA [None]
  - GENERAL PHYSICAL HEALTH DETERIORATION [None]
  - HYPONATRAEMIA [None]
  - LUNG DISORDER [None]
  - MYELODYSPLASTIC SYNDROME TRANSFORMATION [None]
  - NERVOUS SYSTEM DISORDER [None]
